FAERS Safety Report 19217332 (Version 1)
Quarter: 2021Q2

REPORT INFORMATION
  Report Type: Spontaneous
  Country: US (occurrence: US)
  Receive Date: 20210505
  Receipt Date: 20210505
  Transmission Date: 20210717
  Serious: Yes (Other)
  Sender: FDA-Public Use
  Company Number: None

PATIENT
  Age: 58 Year
  Sex: Female

DRUGS (7)
  1. HYDROCODONE [Concomitant]
     Active Substance: HYDROCODONE
  2. DIAZAPAM [Concomitant]
     Active Substance: DIAZEPAM
  3. 1% CANTHACUR [Suspect]
     Active Substance: CANTHARIDIN
     Indication: SKIN PAPILLOMA
     Dosage: ?          QUANTITY:2ND TIME THEY UED IT 10/1 + 10/19?
     Dates: start: 20191001, end: 20191015
  4. VITAMIN D [Concomitant]
     Active Substance: VITAMIN D NOS
  5. ATENTOLOL [Concomitant]
  6. EXEDRINE [Concomitant]
  7. VITAMIN C [Concomitant]
     Active Substance: ASCORBIC ACID

REACTIONS (5)
  - Skin irritation [None]
  - Skin haemorrhage [None]
  - Blister [None]
  - Skin exfoliation [None]
  - Onychomycosis [None]

NARRATIVE: CASE EVENT DATE: 20191015
